FAERS Safety Report 15830663 (Version 2)
Quarter: 2019Q1

REPORT INFORMATION
  Report Type: Report from Study
  Country: AU (occurrence: AU)
  Receive Date: 20190116
  Receipt Date: 20190207
  Transmission Date: 20190417
  Serious: Yes (Hospitalization, Other)
  Sender: FDA-Public Use
  Company Number: AU-BRISTOL-MYERS SQUIBB COMPANY-BMS-2018-121880

PATIENT
  Age: 67 Year
  Sex: Male
  Weight: 90.4 kg

DRUGS (2)
  1. IPILIMUMAB [Suspect]
     Active Substance: IPILIMUMAB
     Indication: CHOLANGIOCARCINOMA
     Dosage: 92 MG, UNK
     Route: 042
     Dates: start: 20181107, end: 20181219
  2. NIVOLUMAB [Suspect]
     Active Substance: NIVOLUMAB
     Indication: CHOLANGIOCARCINOMA
     Dosage: 275 MG, UNK
     Route: 042
     Dates: start: 20181107, end: 20181219

REACTIONS (6)
  - Pyrexia [Recovered/Resolved]
  - Cachexia [Recovered/Resolved]
  - Adrenal insufficiency [Not Recovered/Not Resolved]
  - Endocrine disorder [Recovered/Resolved with Sequelae]
  - Dehydration [Not Recovered/Not Resolved]
  - Hyperthyroidism [Unknown]

NARRATIVE: CASE EVENT DATE: 20181223
